FAERS Safety Report 20406729 (Version 2)
Quarter: 2022Q1

REPORT INFORMATION
  Report Type: Spontaneous
  Country: US (occurrence: US)
  Receive Date: 20220131
  Receipt Date: 20220329
  Transmission Date: 20220423
  Serious: No
  Sender: FDA-Public Use
  Company Number: US-EXELIXIS-CABO-21045639

PATIENT
  Age: 68 Year
  Sex: Male

DRUGS (8)
  1. OPDIVO [Suspect]
     Active Substance: NIVOLUMAB
     Indication: Renal cancer
     Route: 065
  2. CABOMETYX [Suspect]
     Active Substance: CABOZANTINIB S-MALATE
     Indication: Renal cancer
     Route: 048
  3. CABOMETYX [Suspect]
     Active Substance: CABOZANTINIB S-MALATE
     Route: 065
     Dates: start: 202108
  4. CABOMETYX [Suspect]
     Active Substance: CABOZANTINIB S-MALATE
     Route: 048
     Dates: start: 20210913
  5. NIVOLUMAB\RELATLIMAB-RMBW [Suspect]
     Active Substance: NIVOLUMAB\RELATLIMAB-RMBW
     Indication: Renal cancer
     Route: 065
  6. LIPITOR [Concomitant]
     Active Substance: ATORVASTATIN CALCIUM
     Indication: Product used for unknown indication
     Route: 065
  7. METOPROLOL [Concomitant]
     Active Substance: METOPROLOL
     Indication: Product used for unknown indication
     Route: 065
  8. WARFARIN [Concomitant]
     Active Substance: WARFARIN
     Indication: Product used for unknown indication
     Route: 065

REACTIONS (3)
  - Facial pain [Recovered/Resolved]
  - Skin ulcer [Recovered/Resolved]
  - Stomatitis [Unknown]

NARRATIVE: CASE EVENT DATE: 20211028
